FAERS Safety Report 24112754 (Version 1)
Quarter: 2024Q3

REPORT INFORMATION
  Report Type: Spontaneous
  Country: US (occurrence: US)
  Receive Date: 20240719
  Receipt Date: 20240719
  Transmission Date: 20241016
  Serious: Yes (Hospitalization)
  Sender: OTSUKA
  Company Number: US-OTSUKA-2024_018091

PATIENT
  Sex: Female
  Weight: 88.45 kg

DRUGS (2)
  1. ABILIFY [Suspect]
     Active Substance: ARIPIPRAZOLE
     Indication: Major depression
     Dosage: 5 MG, QD
     Route: 065
  2. ABILIFY [Suspect]
     Active Substance: ARIPIPRAZOLE
     Indication: Schizophrenia

REACTIONS (9)
  - Illness [Not Recovered/Not Resolved]
  - Psychotic disorder [Unknown]
  - Insomnia [Not Recovered/Not Resolved]
  - Dizziness [Not Recovered/Not Resolved]
  - Product use issue [Not Recovered/Not Resolved]
  - Recalled product [Unknown]
  - Product availability issue [Unknown]
  - Therapy cessation [Unknown]
  - Refusal of treatment by patient [Unknown]

NARRATIVE: CASE EVENT DATE: 20240101
